FAERS Safety Report 5495369-3 (Version None)
Quarter: 2007Q4

REPORT INFORMATION
  Report Type: 
  Country: None (occurrence: None)
  Receive Date: 20071024
  Receipt Date: 20071012
  Transmission Date: 20080405
  Serious: Yes (Hospitalization)
  Sender: FDA-Public Use
  Company Number: ES-PFIZER INC-2007087217

PATIENT

DRUGS (6)
  1. AMLODIPINE [Suspect]
     Indication: HYPERTENSION
  2. CETUXIMAB [Suspect]
     Indication: COLON CANCER
     Dosage: DAILY DOSE:250MG/M*2-FREQ:1/1 WEEK
     Route: 042
  3. GALENIC /HYDROCHLOROTHIAZIDE/IRBESARTAN/ [Suspect]
     Indication: HYPERTENSION
  4. OXALIPLATIN [Suspect]
     Indication: COLON CANCER
     Dosage: DAILY DOSE:85MG/M*2
     Route: 042
  5. FLUOROURACIL [Suspect]
     Indication: COLON CANCER
     Dosage: DAILY DOSE:320MG/M*2
     Route: 042
  6. FOLINIC ACID [Suspect]
     Indication: COLON CANCER
     Dosage: DAILY DOSE:160MG/M*2
     Route: 042

REACTIONS (1)
  - RENAL FAILURE [None]
